FAERS Safety Report 11653379 (Version 5)
Quarter: 2015Q4

REPORT INFORMATION
  Report Type: Report from Study
  Country: JP (occurrence: JP)
  Receive Date: 20151022
  Receipt Date: 20151228
  Transmission Date: 20160304
  Serious: Yes (Death, Hospitalization, Other)
  Sender: FDA-Public Use
  Company Number: PHHY2014JP174754

PATIENT
  Age: 71 Year
  Sex: Male
  Weight: 42 kg

DRUGS (5)
  1. SENNOSIDE [Suspect]
     Active Substance: SENNOSIDES
     Indication: CONSTIPATION PROPHYLAXIS
     Dosage: UNK
     Route: 048
     Dates: start: 20141009
  2. MAGMITT [Suspect]
     Active Substance: MAGNESIUM OXIDE
     Indication: CONSTIPATION PROPHYLAXIS
     Route: 048
  3. KALIMATE [Concomitant]
     Active Substance: CALCIUM POLYSTYRENE SULFONATE
     Dosage: 4 DF, QD
     Route: 065
     Dates: start: 20141016
  4. PAZOPANIB [Suspect]
     Active Substance: PAZOPANIB
     Indication: RENAL CELL CARCINOMA STAGE IV
     Dosage: 600 MG, QD
     Route: 048
     Dates: start: 20141009, end: 20141101
  5. KALIMATE [Concomitant]
     Active Substance: CALCIUM POLYSTYRENE SULFONATE
     Indication: PRODUCT USED FOR UNKNOWN INDICATION
     Dosage: UNK
     Route: 065
     Dates: start: 20141009

REACTIONS (15)
  - Blood pressure decreased [Recovered/Resolved]
  - Malignant neoplasm progression [Fatal]
  - Body temperature increased [Unknown]
  - Hepatic function abnormal [Fatal]
  - General physical health deterioration [Unknown]
  - Abdominal pain [Recovering/Resolving]
  - Hyponatraemia [Recovered/Resolved]
  - Platelet count decreased [Not Recovered/Not Resolved]
  - Haemorrhage subcutaneous [Not Recovered/Not Resolved]
  - Blood pressure increased [Unknown]
  - Gastrointestinal oedema [Unknown]
  - Hypoglycaemia [Recovered/Resolved]
  - Tenderness [Unknown]
  - Diarrhoea [Recovering/Resolving]
  - Decreased appetite [Not Recovered/Not Resolved]

NARRATIVE: CASE EVENT DATE: 20141028
